FAERS Safety Report 9275866 (Version 1)
Quarter: 2013Q2

REPORT INFORMATION
  Report Type: Spontaneous
  Country: US (occurrence: US)
  Receive Date: 20130507
  Receipt Date: 20130507
  Transmission Date: 20140414
  Serious: Yes (Hospitalization)
  Sender: FDA-Public Use
  Company Number: US-JNJFOC-20130417822

PATIENT
  Age: 81 Year
  Sex: Female
  Weight: 44.45 kg

DRUGS (3)
  1. SUDAFED 12 HOUR [Suspect]
     Route: 048
  2. SUDAFED 12 HOUR [Suspect]
     Indication: RESPIRATORY TRACT CONGESTION
     Route: 048
     Dates: start: 20130413, end: 20130414
  3. LOSARTAN [Concomitant]
     Indication: HYPERTENSION
     Dosage: SINCE 3 MONTHS
     Route: 065

REACTIONS (7)
  - Loss of consciousness [Recovered/Resolved]
  - Head injury [Unknown]
  - Fall [Recovered/Resolved]
  - Excoriation [Unknown]
  - Dizziness [Recovered/Resolved]
  - Off label use [Unknown]
  - Haemorrhage [None]
